FAERS Safety Report 5102802-5 (Version None)
Quarter: 2006Q3

REPORT INFORMATION
  Report Type: 
  Country: None (occurrence: None)
  Receive Date: 20060807
  Receipt Date: 20060823
  Transmission Date: 20061208
  Serious: Yes (Other)
  Sender: FDA-Public Use
  Company Number: 2006-BP-09789RO

PATIENT
  Age: 22 Year
  Sex: Female

DRUGS (3)
  1. LITHIUM CARBONATE [Suspect]
     Indication: GENERALISED ANXIETY DISORDER
     Dosage: 900 MG DAILY (NR), NR
  2. OLANZAPINE [Suspect]
     Indication: ANXIETY
     Dosage: 2.5 MG X 1 DOSE (2.5 MG), NR
  3. PAROXETINE [Suspect]
     Indication: GENERALISED ANXIETY DISORDER
     Dosage: 40 MG DAILY (NR), NR

REACTIONS (5)
  - ANTIPSYCHOTIC DRUG LEVEL BELOW THERAPEUTIC [None]
  - ANXIETY [None]
  - EXTRAPYRAMIDAL DISORDER [None]
  - NO REACTION ON PREVIOUS EXPOSURE TO DRUG [None]
  - OCULOGYRATION [None]
